FAERS Safety Report 8882539 (Version 2)
Quarter: 2013Q1

REPORT INFORMATION
  Report Type: Spontaneous
  Country: US (occurrence: US)
  Receive Date: 20121103
  Receipt Date: 20130103
  Transmission Date: 20140127
  Serious: No
  Sender: FDA-Public Use
  Company Number: US-TEVA-367356USA

PATIENT
  Age: 44 Year
  Sex: Female

DRUGS (7)
  1. FENTORA [Suspect]
     Indication: RHEUMATOID ARTHRITIS
     Route: 002
     Dates: start: 20120927
  2. AMOXICILLIN [Concomitant]
  3. ARAVA [Concomitant]
  4. COPAMAX [Concomitant]
  5. LEXAPRO [Concomitant]
  6. REMICADE [Concomitant]
  7. OXYCONTIN [Concomitant]

REACTIONS (2)
  - Pain [Not Recovered/Not Resolved]
  - Off label use [Unknown]
